FAERS Safety Report 9368324 (Version 1)
Quarter: 2013Q2

REPORT INFORMATION
  Report Type: Spontaneous
  Country: US (occurrence: US)
  Receive Date: 20130625
  Receipt Date: 20130625
  Transmission Date: 20140414
  Serious: No
  Sender: FDA-Public Use
  Company Number: US-ASTELLAS-2013US000507

PATIENT
  Age: 88 Year
  Sex: Female

DRUGS (4)
  1. VESICARE [Suspect]
     Indication: PRODUCT USED FOR UNKNOWN INDICATION
     Dosage: 5 MG, UID/QD
     Route: 048
  2. THYROID [Concomitant]
     Indication: THYROID DISORDER
     Dosage: UNK
     Route: 065
  3. CARDIAC THERAPY [Concomitant]
     Indication: CARDIAC DISORDER
     Dosage: UNK
     Route: 065
  4. ANTIHYPERTENSIVES [Concomitant]
     Indication: BLOOD PRESSURE
     Dosage: UNK
     Route: 065

REACTIONS (3)
  - Treatment noncompliance [Unknown]
  - Dysuria [Unknown]
  - Constipation [Unknown]
